FAERS Safety Report 17666642 (Version 6)
Quarter: 2020Q4

REPORT INFORMATION
  Report Type: Spontaneous
  Country: US (occurrence: TW)
  Receive Date: 20200414
  Receipt Date: 20201204
  Transmission Date: 20210113
  Serious: Yes (Hospitalization, Other)
  Sender: FDA-Public Use
  Company Number: TW-BIOMARINAP-TW-2020-129619

PATIENT
  Age: 41 Year
  Sex: Female

DRUGS (1)
  1. ALDURAZYME [Suspect]
     Active Substance: LARONIDASE
     Indication: PRODUCT USED FOR UNKNOWN INDICATION
     Dosage: UNK UNK, QW
     Route: 042

REACTIONS (16)
  - Iron deficiency anaemia [Recovering/Resolving]
  - Red blood cell count decreased [Recovering/Resolving]
  - Dizziness [Not Recovered/Not Resolved]
  - Pain [Unknown]
  - Dizziness [Recovering/Resolving]
  - Haemoglobin decreased [Recovering/Resolving]
  - Hysterectomy [Recovering/Resolving]
  - Hepatomegaly [Not Recovered/Not Resolved]
  - Back pain [Not Recovered/Not Resolved]
  - Uterine hypotonus [Unknown]
  - Thrombosis [Unknown]
  - Laryngeal hypertrophy [Recovering/Resolving]
  - Central venous catheterisation [Unknown]
  - Vomiting [Recovered/Resolved]
  - Dyspnoea [Recovering/Resolving]
  - Tension headache [Not Recovered/Not Resolved]

NARRATIVE: CASE EVENT DATE: 20200402
